FAERS Safety Report 7654345-2 (Version None)
Quarter: 2011Q3

REPORT INFORMATION
  Report Type: 
  Country: None (occurrence: None)
  Receive Date: 20110803
  Receipt Date: 20110728
  Transmission Date: 20111222
  Serious: Yes (Death)
  Sender: FDA-Public Use
  Company Number: GB-PFIZER INC-2011164396

PATIENT
  Age: 50 Year
  Sex: Male

DRUGS (23)
  1. CYTARABINE [Suspect]
     Indication: MYELODYSPLASTIC SYNDROME
  2. METHYLPREDNISOLONE [Concomitant]
     Dosage: 50 MG, UNK
     Dates: start: 20110608, end: 20110612
  3. TRANEXAMIC ACID [Concomitant]
     Dosage: 1 G, UNK
     Dates: start: 20110531, end: 20110603
  4. AMBISOME [Concomitant]
     Dosage: 800 MG, UNK
     Dates: start: 20110605, end: 20110612
  5. DOMPERIDONE [Concomitant]
     Dosage: 20 MG, UNK
     Dates: start: 20110518, end: 20110612
  6. CIPROFLOXACIN [Concomitant]
     Dosage: 750 MG, UNK
     Dates: start: 20110522, end: 20110528
  7. MEROPENEM [Concomitant]
     Dosage: 1 G, UNK
     Dates: start: 20110605, end: 20110612
  8. GENTAMICIN [Concomitant]
     Dosage: 650 MG, UNK
     Dates: start: 20110525, end: 20110528
  9. GEMTUZUMAB OZOGAMICIN [Suspect]
     Indication: ACUTE MYELOID LEUKAEMIA
     Dosage: UNK
     Dates: start: 20110517, end: 20110526
  10. GEMTUZUMAB OZOGAMICIN [Suspect]
     Indication: MYELODYSPLASTIC SYNDROME
  11. DAUNORUBICIN HCL [Suspect]
     Indication: MYELODYSPLASTIC SYNDROME
  12. ACICLOVIR [Concomitant]
     Dosage: 700 MG, UNK
     Dates: start: 20110521, end: 20110603
  13. ETOPOSIDE [Suspect]
     Indication: ACUTE MYELOID LEUKAEMIA
     Dosage: UNK
     Dates: start: 20110517, end: 20110526
  14. PARACETAMOL [Concomitant]
     Dosage: 1 G, UNK
     Dates: start: 20110608, end: 20110612
  15. DAUNORUBICIN HCL [Suspect]
     Indication: ACUTE MYELOID LEUKAEMIA
     Dosage: UNK
     Dates: start: 20110517, end: 20110526
  16. CYCLIZINE [Concomitant]
     Dosage: 50 MG, UNK
     Dates: start: 20110521, end: 20110609
  17. ITRACONAZOLE [Concomitant]
     Dosage: 200 MG, UNK
     Dates: start: 20110523, end: 20110529
  18. CODEINE PHOSPHATE [Concomitant]
     Dosage: 60 MG, UNK
     Dates: start: 20110517, end: 20110603
  19. ETOPOSIDE [Suspect]
     Indication: MYELODYSPLASTIC SYNDROME
  20. ALLOPURINOL [Concomitant]
     Dosage: 500 MG, UNK
     Dates: start: 20110516, end: 20110603
  21. VANCOMYCIN [Concomitant]
     Dosage: 1 G, UNK
     Dates: start: 20110605, end: 20110612
  22. CYTARABINE [Suspect]
     Indication: ACUTE MYELOID LEUKAEMIA
     Dosage: UNK
     Dates: start: 20110517, end: 20110526
  23. PIPERACILLIN AND TAZOBACTAM [Concomitant]
     Dosage: 4.5 G, UNK
     Dates: start: 20110516, end: 20110520

REACTIONS (3)
  - DISEASE PROGRESSION [None]
  - ACUTE MYELOID LEUKAEMIA [None]
  - PNEUMONIA [None]
